FAERS Safety Report 10908293 (Version 7)
Quarter: 2015Q2

REPORT INFORMATION
  Report Type: Spontaneous
  Country: US (occurrence: US)
  Receive Date: 20150312
  Receipt Date: 20150617
  Transmission Date: 20150821
  Serious: Yes (Hospitalization, Disabling, Other)
  Sender: FDA-Public Use
  Company Number: US-009507513-1107USA00353

PATIENT
  Sex: Female
  Weight: 83.45 kg

DRUGS (3)
  1. ALENDRONATE SODIUM. [Suspect]
     Active Substance: ALENDRONATE SODIUM
     Indication: BONE DENSITY DECREASED
     Dosage: 70 MG, QW
     Route: 048
     Dates: start: 20080212, end: 20100922
  2. FOSAMAX [Suspect]
     Active Substance: ALENDRONATE SODIUM
     Indication: OSTEOPENIA
     Dosage: 70 MG, WEEKLY
     Route: 048
     Dates: start: 20021016, end: 20101215
  3. ALENDRONATE SODIUM. [Suspect]
     Active Substance: ALENDRONATE SODIUM
     Indication: BONE DENSITY DECREASED
     Dosage: 70 MG, WEEKLY
     Route: 048
     Dates: end: 20100930

REACTIONS (33)
  - Intramedullary rod insertion [Unknown]
  - Fracture [Unknown]
  - Cough [Not Recovered/Not Resolved]
  - Osteomalacia [Unknown]
  - Depression [Unknown]
  - Hypoxia [Unknown]
  - Rotator cuff syndrome [Unknown]
  - Spinal laminectomy [Unknown]
  - Osteoarthritis [Not Recovered/Not Resolved]
  - Actinic keratosis [Not Recovered/Not Resolved]
  - Adverse event [Unknown]
  - Intramedullary rod insertion [Unknown]
  - Anaemia postoperative [Unknown]
  - Bone disorder [Not Recovered/Not Resolved]
  - Essential hypertension [Unknown]
  - Inguinal hernia [Unknown]
  - Gastrooesophageal reflux disease [Not Recovered/Not Resolved]
  - Hypotension [Unknown]
  - Hypercholesterolaemia [Not Recovered/Not Resolved]
  - Hyperglycaemia [Unknown]
  - Femur fracture [Not Recovered/Not Resolved]
  - Irritable bowel syndrome [Unknown]
  - Hyperlipidaemia [Unknown]
  - Chronic sinusitis [Not Recovered/Not Resolved]
  - Haemorrhoids [Not Recovered/Not Resolved]
  - Hiatus hernia [Not Recovered/Not Resolved]
  - Cholecystectomy [Unknown]
  - Femur fracture [Not Recovered/Not Resolved]
  - Blood calcium increased [Unknown]
  - Hypoaesthesia [Unknown]
  - Anaemia [Unknown]
  - Hypokalaemia [Unknown]
  - Osteoporosis [Unknown]

NARRATIVE: CASE EVENT DATE: 200608
